FAERS Safety Report 11106470 (Version 2)
Quarter: 2015Q2

REPORT INFORMATION
  Report Type: Spontaneous
  Country: US (occurrence: FR)
  Receive Date: 20150512
  Receipt Date: 20150604
  Transmission Date: 20150821
  Serious: Yes (Hospitalization)
  Sender: FDA-Public Use
  Company Number: FR-FRI-1000076376

PATIENT
  Age: 61 Year
  Sex: Female

DRUGS (3)
  1. CEFTAROLINE FOSAMIL [Suspect]
     Active Substance: CEFTAROLINE FOSAMIL
     Indication: OSTEITIS
     Dosage: 600 MG
     Route: 042
     Dates: start: 20150327, end: 20150409
  2. RIFAMPICINE [Concomitant]
     Active Substance: RIFAMPIN
     Route: 048
     Dates: start: 20150411, end: 20150509
  3. RIFAMPICINE [Concomitant]
     Active Substance: RIFAMPIN
     Indication: OSTEITIS
     Dosage: 600 MG
     Route: 048
     Dates: start: 20150402, end: 20150409

REACTIONS (2)
  - Off label use [Recovered/Resolved]
  - Drug reaction with eosinophilia and systemic symptoms [Recovered/Resolved]

NARRATIVE: CASE EVENT DATE: 20150327
